FAERS Safety Report 7494495 (Version 13)
Quarter: 2013Q4

REPORT INFORMATION
  Report Type: Spontaneous
  Country: US (occurrence: US)
  Receive Date: 20100722
  Receipt Date: 20131001
  Transmission Date: 20140711
  Serious: Yes (Death, Hospitalization, Other)
  Sender: FDA-Public Use
  Company Number: PHEH2010US03503

PATIENT
  Age: 65 Year
  Sex: Female
  Weight: 88.89 kg

DRUGS (45)
  1. ZOMETA [Suspect]
     Indication: PLASMA CELL MYELOMA
     Dates: end: 200902
  2. ZOMETA [Suspect]
     Indication: OSTEOPOROSIS
  3. ZOMETA [Suspect]
     Indication: OSTEOARTHRITIS
  4. AREDIA [Suspect]
  5. CLINDAMYCIN [Suspect]
  6. DECADRON [Suspect]
     Dosage: 4 MG, TID
  7. DECADRON [Suspect]
     Dosage: 4 MG, BID
  8. VELCADE [Suspect]
  9. NORVASC [Concomitant]
     Dosage: 10 MG, QD
  10. BENICAR [Concomitant]
     Dosage: 20 MG, QD
  11. MULTIVITAMIN [Concomitant]
  12. HYDROCHLOROTHIAZIDE [Concomitant]
     Dosage: 25 MG, QD
     Route: 048
  13. OXYCODONE [Concomitant]
  14. MORPHINE [Concomitant]
  15. ONDASETRON [Concomitant]
  16. METOCLOPRAMIDE [Concomitant]
  17. DILAUDID [Concomitant]
  18. METOPROLOL [Concomitant]
  19. FUROSEMIDE [Concomitant]
  20. WARFARIN [Concomitant]
  21. REVLIMID [Concomitant]
  22. IMIPENEM [Concomitant]
  23. DEXAMETHASONE [Concomitant]
  24. NOVOLOG [Concomitant]
  25. HEPARIN [Concomitant]
  26. PERIDEX [Concomitant]
  27. LIDOCAINE [Concomitant]
     Dosage: 3 DF, ONCE/SINGLE
     Route: 048
  28. FLAGYL [Concomitant]
     Dosage: 500 MG, Q12H
     Route: 048
  29. AMOXICILLIN [Concomitant]
     Dosage: 500 MG, Q8H
     Route: 048
  30. ERTAPENEM [Concomitant]
  31. CIPROFLOXACIN [Concomitant]
  32. LOPRESSOR [Concomitant]
     Dosage: 5 MG, UNK
     Route: 042
  33. LOPRESSOR [Concomitant]
     Dosage: 50 MG, QD
     Route: 048
  34. LASIX [Concomitant]
  35. DYNACIRC [Concomitant]
     Dosage: 5 MG, QD
     Route: 048
  36. VANCOMYCIN [Concomitant]
     Route: 042
  37. LEVOFLOXACIN [Concomitant]
     Dosage: 500 MG, UNK
     Route: 042
  38. PROPOFOL [Concomitant]
  39. PENICILLIN G POTASSIUM [Concomitant]
     Dosage: UNK UKN, Q6H
     Route: 042
  40. VICODIN [Concomitant]
  41. COUMADINE [Concomitant]
  42. SENNA [Concomitant]
  43. MS CONTIN [Concomitant]
  44. THALIDOMIDE [Concomitant]
  45. SENOKOT [Concomitant]

REACTIONS (141)
  - Death [Fatal]
  - Osteonecrosis of jaw [Unknown]
  - Overdose [Unknown]
  - Pain [Unknown]
  - Discomfort [Unknown]
  - Deformity [Unknown]
  - Dysphagia [Unknown]
  - Emotional distress [Unknown]
  - Anxiety [Unknown]
  - Life expectancy shortened [Unknown]
  - Injury [Unknown]
  - Quality of life decreased [Unknown]
  - Colon cancer [Unknown]
  - Large intestine polyp [Unknown]
  - Intervertebral disc protrusion [Unknown]
  - Proteinuria [Unknown]
  - Nephrolithiasis [Unknown]
  - Renal failure chronic [Unknown]
  - Bone pain [Unknown]
  - Neck pain [Unknown]
  - Metastases to bone [Unknown]
  - Neoplasm progression [Unknown]
  - Malignant neoplasm progression [Unknown]
  - Intervertebral disc degeneration [Unknown]
  - Pathological fracture [Unknown]
  - Compression fracture [Unknown]
  - Sinus bradycardia [Unknown]
  - Dyspnoea exertional [Unknown]
  - Anaemia [Unknown]
  - Oedema [Unknown]
  - Pruritus [Unknown]
  - Cardiomegaly [Unknown]
  - Hepatitis [Unknown]
  - Tooth avulsion [Unknown]
  - Respiratory failure [Unknown]
  - Hypotension [Unknown]
  - Renal failure acute [Unknown]
  - Pancytopenia [Unknown]
  - Pharyngeal abscess [Unknown]
  - Hyperglycaemia [Unknown]
  - Coagulopathy [Unknown]
  - Dysphonia [Unknown]
  - Necrotising fasciitis [Unknown]
  - Femur fracture [Unknown]
  - Osteomyelitis [Unknown]
  - Deep vein thrombosis [Unknown]
  - Chest wall abscess [Unknown]
  - Abscess jaw [Unknown]
  - Abscess neck [Unknown]
  - Cardiac failure congestive [Unknown]
  - Cellulitis [Unknown]
  - Atelectasis [Unknown]
  - Loose tooth [Unknown]
  - Breath odour [Unknown]
  - Periodontal disease [Unknown]
  - Exposed bone in jaw [Unknown]
  - Abdominal discomfort [Unknown]
  - Diarrhoea [Unknown]
  - Back pain [Recovering/Resolving]
  - Wound complication [Unknown]
  - Chest pain [Unknown]
  - Erythema [Unknown]
  - Oedema peripheral [Unknown]
  - Leukopenia [Unknown]
  - Pain in jaw [Unknown]
  - Bone lesion [Unknown]
  - Rectal cancer [Unknown]
  - Hypercalcaemia [Unknown]
  - Vitamin B12 deficiency [Unknown]
  - Hyperparathyroidism [Unknown]
  - Hypokalaemia [Unknown]
  - Cholelithiasis [Unknown]
  - Renal cyst [Unknown]
  - Fall [Unknown]
  - Hip fracture [Unknown]
  - Upper respiratory tract infection [Unknown]
  - Cough [Unknown]
  - Toothache [Unknown]
  - Hydronephrosis [Unknown]
  - Angiomyolipoma [Unknown]
  - Tremor [Unknown]
  - Confusional state [Unknown]
  - Emphysema [Unknown]
  - Osteopenia [Unknown]
  - Hepatic steatosis [Unknown]
  - Asthenia [Unknown]
  - Urinary incontinence [Unknown]
  - Flank pain [Unknown]
  - Gastrooesophageal reflux disease [Unknown]
  - Dyslipidaemia [Unknown]
  - Gait disturbance [Unknown]
  - Spinal cord compression [Unknown]
  - Anisocytosis [Unknown]
  - Hypochromasia [Unknown]
  - Gastric ulcer [Unknown]
  - Cushingoid [Unknown]
  - Diverticulum [Unknown]
  - Clavicle fracture [Unknown]
  - Infection [Unknown]
  - Immunodeficiency [Unknown]
  - Osteitis [Unknown]
  - Bone swelling [Unknown]
  - Thrombocytopenia [Unknown]
  - Urinary tract infection [Unknown]
  - Gout [Unknown]
  - Normochromic normocytic anaemia [Unknown]
  - Hepatomegaly [Unknown]
  - Dehydration [Unknown]
  - Decubitus ulcer [Unknown]
  - Bradycardia [Unknown]
  - Lip swelling [Unknown]
  - Eyelid oedema [Unknown]
  - Swollen tongue [Unknown]
  - Urticaria [Unknown]
  - Arrhythmia [Unknown]
  - Angioedema [Unknown]
  - Hyperalbuminaemia [Unknown]
  - Abscess limb [Unknown]
  - Skin ulcer [Unknown]
  - Arteriosclerosis [Unknown]
  - Vascular calcification [Unknown]
  - Bone marrow oedema [Unknown]
  - Hyperlipidaemia [Unknown]
  - Diabetic foot [Unknown]
  - Pleural effusion [Unknown]
  - Staphylococcal sepsis [Unknown]
  - Neuropathy peripheral [Unknown]
  - Renal disorder [Unknown]
  - Left ventricular hypertrophy [Unknown]
  - Mitral valve incompetence [Unknown]
  - Tricuspid valve incompetence [Unknown]
  - Bronchitis [Unknown]
  - Renal hypertrophy [Unknown]
  - Spinal osteoarthritis [Unknown]
  - Peroneal nerve palsy [Unknown]
  - Wound [Unknown]
  - Dementia Alzheimer^s type [Unknown]
  - Osteosclerosis [Unknown]
  - Actinomycosis [Unknown]
  - Calculus ureteric [Unknown]
  - Kyphosis [Unknown]
